FAERS Safety Report 20183858 (Version 2)
Quarter: 2021Q4

REPORT INFORMATION
  Report Type: Report from Study
  Country: KR (occurrence: None)
  Receive Date: 20211214
  Receipt Date: 20211220
  Transmission Date: 20220303
  Serious: Yes (Hospitalization)
  Sender: FDA-Public Use
  Company Number: KR-Eisai Medical Research-EC-2021-104881

PATIENT
  Age: 52 Year
  Sex: Male

DRUGS (9)
  1. LENVIMA [Suspect]
     Active Substance: LENVATINIB
     Indication: Hepatocellular carcinoma
     Route: 048
     Dates: start: 20200518, end: 202012
  2. AMLODIPINE CAMSYLATE [Concomitant]
     Active Substance: AMLODIPINE CAMSYLATE
     Indication: Hypertension
     Route: 048
     Dates: start: 20200512
  3. LEVOPRIDE [Concomitant]
     Indication: Gastritis
     Dosage: UNKNOWN FREQUENCY
     Route: 048
     Dates: start: 20200512
  4. GLIPTIDE [Concomitant]
     Indication: Gastritis
     Route: 048
     Dates: start: 20200512
  5. ALMAGEL F [Concomitant]
     Indication: Gastritis
     Dosage: 3 PACK
     Route: 048
     Dates: start: 20200512
  6. URSODIOL [Concomitant]
     Active Substance: URSODIOL
     Indication: Chronic hepatitis
     Route: 048
     Dates: start: 20200512
  7. DIETARY SUPPLEMENT\HERBALS\MILK THISTLE [Concomitant]
     Active Substance: DIETARY SUPPLEMENT\HERBALS\MILK THISTLE
     Indication: Chronic hepatitis
     Route: 048
     Dates: start: 20200512
  8. LIVACT GRAN [Concomitant]
     Indication: Chronic hepatitis
     Dosage: 2 PACK
     Route: 048
     Dates: start: 20200512
  9. ENTECAVIR [Concomitant]
     Active Substance: ENTECAVIR
     Indication: Chronic hepatitis
     Route: 048
     Dates: start: 20200512

REACTIONS (1)
  - Hepatic encephalopathy [Recovered/Resolved]

NARRATIVE: CASE EVENT DATE: 20201203
